FAERS Safety Report 9559710 (Version 2)
Quarter: 2014Q2

REPORT INFORMATION
  Report Type: Spontaneous
  Country: US (occurrence: None)
  Receive Date: 20130924
  Receipt Date: 20140418
  Transmission Date: 20141212
  Serious: Yes (Hospitalization, Other)
  Sender: FDA-Public Use
  Company Number: AUR-APL-2013-07864

PATIENT
  Age: 85 Year
  Sex: Female
  Weight: 80.27 kg

DRUGS (2)
  1. HYDROCHLOROTHIAZIDE [Suspect]
     Indication: HYPERTENSION
     Dosage: STOPPED
  2. LISINOPRIL [Suspect]
     Indication: HYPERTENSION
     Dosage: STOPPED?

REACTIONS (24)
  - Lethargy [None]
  - Slow response to stimuli [None]
  - Hypotension [None]
  - Escherichia urinary tract infection [None]
  - Pneumonitis [None]
  - Acute myocardial infarction [None]
  - Hypothyroidism [None]
  - Atrial fibrillation [None]
  - Blood pressure systolic increased [None]
  - Hypovolaemia [None]
  - Blood urea increased [None]
  - Blood creatinine increased [None]
  - Cerebral atrophy [None]
  - Cerebral ventricle dilatation [None]
  - Normal pressure hydrocephalus [None]
  - Pleural effusion [None]
  - Left ventricular hypertrophy [None]
  - Left atrial dilatation [None]
  - Aortic valve sclerosis [None]
  - Mitral valve calcification [None]
  - Mitral valve incompetence [None]
  - Presyncope [None]
  - Dehydration [None]
  - Atrial fibrillation [None]
